FAERS Safety Report 6733916-1 (Version None)
Quarter: 2010Q2

REPORT INFORMATION
  Report Type: 
  Country: None (occurrence: None)
  Receive Date: 20100520
  Receipt Date: 20100512
  Transmission Date: 20101027
  Serious: Yes (Other)
  Sender: FDA-Public Use
  Company Number: PT-ROCHE-703161

PATIENT
  Age: 70 Year
  Sex: Female

DRUGS (8)
  1. BONIVA [Suspect]
     Indication: OSTEOPOROSIS
     Route: 048
     Dates: start: 20100509
  2. CALCIUM [Concomitant]
  3. MAGNESIUM [Concomitant]
  4. PANTOPRAZOLE [Concomitant]
  5. PROFENID [Concomitant]
     Dosage: DRUG NAME REPORTED AS : KETOPROFEN(PROFENID)
  6. DUSPATAL RETARD [Concomitant]
  7. TENORMIN [Concomitant]
  8. MODURETIC 5-50 [Concomitant]

REACTIONS (9)
  - BALANCE DISORDER [None]
  - DISORIENTATION [None]
  - DIZZINESS [None]
  - HALLUCINATION [None]
  - HEADACHE [None]
  - NASOPHARYNGITIS [None]
  - NAUSEA [None]
  - VERTIGO [None]
  - VOMITING [None]
